FAERS Safety Report 8909646 (Version 4)
Quarter: 2012Q4

REPORT INFORMATION
  Report Type: 
  Country: JP (occurrence: JP)
  Receive Date: 20121115
  Receipt Date: 20121220
  Transmission Date: 20130627
  Serious: Yes (Hospitalization)
  Sender: FDA-Public Use
  Company Number: JP-MERCK-1211JPN006110

PATIENT
  Age: 82 Year
  Sex: Female

DRUGS (2)
  1. REMERON [Suspect]
     Dosage: daily dose unknown
     Route: 048
  2. AMANTADINE HYDROCHLORIDE [Suspect]
     Dosage: daily dose unknown
     Route: 048

REACTIONS (2)
  - Renal failure chronic [Unknown]
  - Azotaemia [Unknown]
